FAERS Safety Report 9528418 (Version 1)
Quarter: 2013Q3

REPORT INFORMATION
  Report Type: Spontaneous
  Country: US (occurrence: US)
  Receive Date: 20130917
  Receipt Date: 20130917
  Transmission Date: 20140515
  Serious: Yes (Other)
  Sender: FDA-Public Use
  Company Number: US-PFIZER INC-2013264543

PATIENT
  Age: 59 Year
  Sex: Female

DRUGS (1)
  1. ACCUPRIL [Suspect]
     Dosage: UNK

REACTIONS (7)
  - Road traffic accident [Unknown]
  - Depression [Unknown]
  - Amnesia [Unknown]
  - Insomnia [Unknown]
  - Injury [Unknown]
  - Anxiety [Unknown]
  - Pain [Unknown]
